FAERS Safety Report 6122561-7 (Version None)
Quarter: 2009Q1

REPORT INFORMATION
  Report Type: 
  Country: None (occurrence: None)
  Receive Date: 20090316
  Receipt Date: 20090316
  Transmission Date: 20090719
  Serious: No
  Sender: FDA-Public Use
  Company Number: None

PATIENT
  Age: 59 Year
  Sex: Male
  Weight: 103.8737 kg

DRUGS (5)
  1. VARENICLINE 0.5MG/1MG PFIZER [Suspect]
     Indication: SMOKING CESSATION THERAPY
     Dosage: 0.5MG QD X 3DAY THEN BID PO 1MG BID DAY #8
     Route: 048
     Dates: start: 20090210, end: 20090228
  2. ARIPIPRAZOLE [Concomitant]
  3. SERTRALINE HCL [Concomitant]
  4. SIMVASTATIN [Concomitant]
  5. LISINOPRIL [Concomitant]

REACTIONS (6)
  - ANOREXIA [None]
  - DEPRESSION [None]
  - DISTURBANCE IN ATTENTION [None]
  - DRUG INTERACTION [None]
  - NO REACTION ON PREVIOUS EXPOSURE TO DRUG [None]
  - WEIGHT DECREASED [None]
